FAERS Safety Report 8758790 (Version 3)
Quarter: 2013Q1

REPORT INFORMATION
  Report Type: Spontaneous
  Country: GB (occurrence: None)
  Receive Date: 20120817
  Receipt Date: 20130307
  Transmission Date: 20140127
  Serious: Yes (Death, Hospitalization, Other)
  Sender: FDA-Public Use
  Company Number: AUR-APL-2012-03493

PATIENT
  Age: 70 Year
  Sex: Male

DRUGS (1)
  1. METFORMIN [Suspect]
     Indication: PRODUCT USED FOR UNKNOWN INDICATION
     Route: 048

REACTIONS (16)
  - Suicide attempt [None]
  - Incorrect dose administered [None]
  - Vomiting [None]
  - Agitation [None]
  - Confusional state [None]
  - Abdominal pain [None]
  - Blood pressure systolic increased [None]
  - Lactic acidosis [None]
  - Renal failure acute [None]
  - Continuous haemodiafiltration [None]
  - Atrial fibrillation [None]
  - Cardiovascular insufficiency [None]
  - Pneumonia [None]
  - Refusal of treatment by patient [None]
  - Cardiac failure [None]
  - Blood sodium increased [None]
